FAERS Safety Report 4424101-7 (Version None)
Quarter: 2004Q4

REPORT INFORMATION
  Report Type: 
  Country: None (occurrence: None)
  Receive Date: 20040809
  Receipt Date: 20040729
  Transmission Date: 20050328
  Serious: Yes (Death, Life-Threatening, Hospitalization)
  Sender: FDA-Public Use
  Company Number: 2004-07-1190

PATIENT
  Age: 6 Year
  Sex: Male

DRUGS (6)
  1. CELESTONE [Suspect]
     Indication: ASTHMA
     Dosage: SEE IMAGE
     Route: 048
     Dates: start: 20020115, end: 20020119
  2. CELESTONE [Suspect]
     Indication: ASTHMA
     Dosage: SEE IMAGE
     Route: 048
     Dates: start: 20040119, end: 20040124
  3. BECONASE [Suspect]
     Indication: ASTHMA
     Dosage: 200 MCG QD INHALATION
     Route: 055
     Dates: start: 20020121, end: 20020124
  4. THEO-DUR [Suspect]
     Indication: ASTHMA
     Dosage: 0.8 G QD ORAL
     Route: 048
     Dates: start: 20010417, end: 20020124
  5. PEMIROLAST POTASSIUM SYRUP [Suspect]
     Indication: ASTHMA
     Dosage: 20 G QD ORAL
     Route: 048
     Dates: start: 20010417, end: 20020124
  6. CEFZON GRANULES [Suspect]
     Indication: UPPER RESPIRATORY TRACT INFLAMMATION
     Dosage: 20 G QD ORAL
     Route: 048
     Dates: start: 20020118, end: 20020124

REACTIONS (8)
  - ANAPHYLACTIC SHOCK [None]
  - ASTHMA [None]
  - CARDIAC FAILURE [None]
  - CARDIO-RESPIRATORY ARREST [None]
  - CHEST PAIN [None]
  - HYPOTONIA [None]
  - PYREXIA [None]
  - UPPER RESPIRATORY TRACT INFLAMMATION [None]
